FAERS Safety Report 18409177 (Version 1)
Quarter: 2020Q4

REPORT INFORMATION
  Report Type: Spontaneous
  Country: US (occurrence: US)
  Receive Date: 20201021
  Receipt Date: 20201021
  Transmission Date: 20210114
  Serious: Yes (Other)
  Sender: FDA-Public Use
  Company Number: None

PATIENT
  Age: 59 Year
  Sex: Female
  Weight: 139.5 kg

DRUGS (9)
  1. BUSPIRONE [Concomitant]
     Active Substance: BUSPIRONE HYDROCHLORIDE
  2. OXYGEN. [Concomitant]
     Active Substance: OXYGEN
  3. GABAPENTIN. [Suspect]
     Active Substance: GABAPENTIN
     Indication: NEURALGIA
     Route: 048
     Dates: start: 20201018, end: 20201020
  4. VITAMIN D [Concomitant]
     Active Substance: VITAMIN D NOS
  5. ALBUTEROL. [Concomitant]
     Active Substance: ALBUTEROL
  6. HYDROCODONE [Concomitant]
     Active Substance: HYDROCODONE
  7. GABAPENTIN. [Suspect]
     Active Substance: GABAPENTIN
     Indication: PAIN IN EXTREMITY
     Route: 048
     Dates: start: 20201018, end: 20201020
  8. CPAP [Concomitant]
     Active Substance: DEVICE
  9. DIPHENHYDRAMINE. [Concomitant]
     Active Substance: DIPHENHYDRAMINE

REACTIONS (1)
  - Dyspnoea [None]

NARRATIVE: CASE EVENT DATE: 20201020
